FAERS Safety Report 23362739 (Version 2)
Quarter: 2024Q1

REPORT INFORMATION
  Report Type: Spontaneous
  Country: US (occurrence: US)
  Receive Date: 20240103
  Receipt Date: 20240131
  Transmission Date: 20240410
  Serious: No
  Sender: FDA-Public Use
  Company Number: US-SAREPTA THERAPEUTICS INC.-SRP2023-004181

PATIENT
  Age: 14 Year
  Sex: Female
  Weight: 105.1 kg

DRUGS (9)
  1. EXONDYS 51 [Suspect]
     Active Substance: ETEPLIRSEN
     Indication: Duchenne muscular dystrophy
     Dosage: 1900 MILLIGRAM, WEEKLY
     Route: 042
     Dates: start: 20190923, end: 20231102
  2. EXONDYS 51 [Suspect]
     Active Substance: ETEPLIRSEN
     Dosage: 1900 MILLIGRAM, WEEKLY
     Route: 042
     Dates: start: 20231116, end: 20231121
  3. EXONDYS 51 [Suspect]
     Active Substance: ETEPLIRSEN
     Dosage: 1900 MILLIGRAM, WEEKLY
     Route: 042
     Dates: start: 20231214
  4. ADDERALL [Concomitant]
     Active Substance: AMPHETAMINE ASPARTATE\AMPHETAMINE SULFATE\DEXTROAMPHETAMINE SACCHARATE\DEXTROAMPHETAMINE SULFATE
     Indication: Attention deficit hyperactivity disorder
     Dosage: 30 MILLIGRAM, BID
     Route: 048
  5. AMITRIPTYLINE [Concomitant]
     Active Substance: AMITRIPTYLINE
     Indication: Pain in extremity
     Dosage: 50 MILLIGRAM TABLET, BID
  6. FERROUS FUMARATE [Concomitant]
     Active Substance: FERROUS FUMARATE
     Indication: Iron deficiency
     Dosage: 324 MILLIGRAM TABLET, QD
  7. NORTREL [ETHINYLESTRADIOL;NORETHISTERONE] [Concomitant]
     Indication: Contraception
     Dosage: UNK TABLET, QD
     Route: 048
  8. SERTRALINE [Concomitant]
     Active Substance: SERTRALINE HYDROCHLORIDE
     Indication: Depression
     Dosage: 50 MILLIGRAM TABLET, QD
     Route: 048
  9. CYANOCOBALAMIN [Concomitant]
     Active Substance: CYANOCOBALAMIN
     Indication: Vitamin B12 deficiency
     Dosage: UNK TABLET, QD
     Route: 048

REACTIONS (2)
  - Keloid scar [Unknown]
  - Catheter site pain [Unknown]

NARRATIVE: CASE EVENT DATE: 20231103
